FAERS Safety Report 8827990 (Version 2)
Quarter: 2012Q4

REPORT INFORMATION
  Report Type: 
  Country: GB (occurrence: GB)
  Receive Date: 20121008
  Receipt Date: 20121018
  Transmission Date: 20130627
  Serious: Yes (Life-Threatening, Hospitalization, Disabling, Other)
  Sender: FDA-Public Use
  Company Number: GB-JNJFOC-20121000494

PATIENT
  Age: 50 Year
  Sex: Female
  Weight: 50 kg

DRUGS (31)
  1. RISPERIDONE [Suspect]
     Indication: CRANIOCEREBRAL INJURY
     Route: 048
     Dates: start: 20110120, end: 20110124
  2. RISPERIDONE [Suspect]
     Indication: CRANIOCEREBRAL INJURY
     Route: 048
     Dates: start: 200908, end: 201007
  3. RISPERIDONE [Suspect]
     Indication: CRANIOCEREBRAL INJURY
     Route: 048
     Dates: start: 20080924
  4. RISPERIDONE [Suspect]
     Indication: CRANIOCEREBRAL INJURY
     Route: 048
  5. RISPERIDONE [Suspect]
     Indication: CRANIOCEREBRAL INJURY
     Route: 048
  6. RISPERIDONE [Suspect]
     Indication: CRANIOCEREBRAL INJURY
     Route: 048
     Dates: start: 20110124
  7. RISPERIDONE [Suspect]
     Indication: CRANIOCEREBRAL INJURY
     Route: 048
     Dates: start: 200903
  8. RISPERIDONE [Suspect]
     Indication: RELAXATION THERAPY
     Route: 048
     Dates: start: 20110124
  9. RISPERIDONE [Suspect]
     Indication: RELAXATION THERAPY
     Route: 048
  10. RISPERIDONE [Suspect]
     Indication: RELAXATION THERAPY
     Route: 048
  11. RISPERIDONE [Suspect]
     Indication: RELAXATION THERAPY
     Route: 048
     Dates: start: 20080924
  12. RISPERIDONE [Suspect]
     Indication: RELAXATION THERAPY
     Route: 048
     Dates: start: 200908, end: 201007
  13. RISPERIDONE [Suspect]
     Indication: RELAXATION THERAPY
     Route: 048
     Dates: start: 200903
  14. RISPERIDONE [Suspect]
     Indication: RELAXATION THERAPY
     Route: 048
     Dates: start: 20110120, end: 20110124
  15. RISPERIDONE [Suspect]
     Indication: POST-TRAUMATIC STRESS DISORDER
     Route: 048
     Dates: start: 20080924
  16. RISPERIDONE [Suspect]
     Indication: POST-TRAUMATIC STRESS DISORDER
     Route: 048
  17. RISPERIDONE [Suspect]
     Indication: POST-TRAUMATIC STRESS DISORDER
     Route: 048
     Dates: start: 200903
  18. RISPERIDONE [Suspect]
     Indication: POST-TRAUMATIC STRESS DISORDER
     Route: 048
     Dates: start: 20110120, end: 20110124
  19. RISPERIDONE [Suspect]
     Indication: POST-TRAUMATIC STRESS DISORDER
     Route: 048
     Dates: start: 200908, end: 201007
  20. RISPERIDONE [Suspect]
     Indication: POST-TRAUMATIC STRESS DISORDER
     Route: 048
     Dates: start: 20110124
  21. RISPERIDONE [Suspect]
     Indication: POST-TRAUMATIC STRESS DISORDER
     Route: 048
  22. RISPERIDONE [Suspect]
     Indication: ABNORMAL BEHAVIOUR
     Route: 048
  23. RISPERIDONE [Suspect]
     Indication: ABNORMAL BEHAVIOUR
     Route: 048
     Dates: start: 20080924
  24. RISPERIDONE [Suspect]
     Indication: ABNORMAL BEHAVIOUR
     Route: 048
  25. RISPERIDONE [Suspect]
     Indication: ABNORMAL BEHAVIOUR
     Route: 048
     Dates: start: 200908, end: 201007
  26. RISPERIDONE [Suspect]
     Indication: ABNORMAL BEHAVIOUR
     Route: 048
     Dates: start: 20110120, end: 20110124
  27. RISPERIDONE [Suspect]
     Indication: ABNORMAL BEHAVIOUR
     Route: 048
     Dates: start: 200903
  28. RISPERIDONE [Suspect]
     Indication: ABNORMAL BEHAVIOUR
     Route: 048
     Dates: start: 20110124
  29. ANTIBIOTICS [Concomitant]
     Indication: STAPHYLOCOCCAL INFECTION
     Route: 065
     Dates: start: 201102, end: 201208
  30. ANTIBIOTICS [Concomitant]
     Indication: CLOSTRIDIAL INFECTION
     Route: 065
     Dates: start: 201102, end: 201208
  31. ANALGESIC [Concomitant]
     Indication: PAIN
     Route: 065

REACTIONS (8)
  - Dyspnoea [Unknown]
  - Psychotic disorder [Unknown]
  - Sydenham^s chorea [Unknown]
  - Aphasia [Not Recovered/Not Resolved]
  - Emotional distress [Unknown]
  - Extrapyramidal disorder [Not Recovered/Not Resolved]
  - Sedation [Unknown]
  - Confusional state [Unknown]
